FAERS Safety Report 23163365 (Version 1)
Quarter: 2023Q4

REPORT INFORMATION
  Report Type: Spontaneous
  Country: IT (occurrence: IT)
  Receive Date: 20231109
  Receipt Date: 20231109
  Transmission Date: 20240109
  Serious: Yes (Hospitalization, Disabling)
  Sender: FDA-Public Use
  Company Number: None

PATIENT
  Age: 49 Year
  Sex: Male
  Weight: 68 kg

DRUGS (4)
  1. BORTEZOMIB [Suspect]
     Active Substance: BORTEZOMIB
     Indication: Plasma cell myeloma
     Dosage: 1.3 MG/M2 DAYS 1, 4, 8, 11 FOR EACH 28 DAY CYCLE (DARAVTD SCHEDULE IN INDUCTION BEFORE AUTOLOGOUS ST
     Dates: start: 20230519, end: 20230721
  2. THALIDOMIDE [Concomitant]
     Active Substance: THALIDOMIDE
     Indication: Plasma cell myeloma
     Dosage: 100 MILLIGRAM DAILY; 100 MG/DAY. SUSPENDED FROM 6/29 TO 7/13 DUE TO SKIN RASH. RESUMED ON 14/7 AT A
     Dates: start: 20230519, end: 20230721
  3. DARATUMUMAB [Concomitant]
     Active Substance: DARATUMUMAB
     Indication: Plasma cell myeloma
     Dosage: 1800 MG SC EVERY WEEK FOR 9 WEEKS (THEN INTERRUPTED DUE TO NEUROPATHY, LAST ADMINISTRATION IS THAT O
     Route: 058
     Dates: start: 20230519, end: 20230714
  4. DEXAMETHASONE [Concomitant]
     Active Substance: DEXAMETHASONE
     Indication: Plasma cell myeloma
     Dosage: 40 MG 2 TIMES/WEEK AS PER DARAVTD PROTOCOL
     Dates: start: 20230519, end: 20230905

REACTIONS (1)
  - Mononeuropathy multiplex [Recovering/Resolving]

NARRATIVE: CASE EVENT DATE: 20230721
